FAERS Safety Report 5279968-X (Version None)
Quarter: 2007Q1

REPORT INFORMATION
  Report Type: 
  Country: None (occurrence: None)
  Receive Date: 20070329
  Receipt Date: 20070323
  Transmission Date: 20070707
  Serious: Yes (Hospitalization)
  Sender: FDA-Public Use
  Company Number: FRWYE315324JAN07

PATIENT
  Age: 44 Year
  Sex: Male
  Weight: 70 kg

DRUGS (9)
  1. EFFEXOR XR [Suspect]
     Route: 048
     Dates: start: 20060928, end: 20061201
  2. ABACAVIR [Suspect]
     Dosage: UNKNOWN
     Route: 048
     Dates: start: 20030201, end: 20061201
  3. LAMIVUDINE [Suspect]
     Dosage: UNKNOWN
     Route: 048
     Dates: start: 20030201, end: 20061201
  4. NEURONTIN [Concomitant]
     Dosage: UNKNOWN
     Route: 048
     Dates: start: 20020101
  5. COLCHIMAX [Concomitant]
     Dosage: UNKNOWN
     Route: 048
     Dates: start: 20060801
  6. ALLOPURINOL [Suspect]
     Dosage: UNKNOWN
     Route: 048
     Dates: start: 20060801, end: 20060901
  7. ALLOPURINOL [Suspect]
     Dosage: INCREASED DOSAGE; UNKNOWN
     Route: 048
     Dates: start: 20060901, end: 20061201
  8. KALETRA [Suspect]
     Dosage: UNKNOWN
     Route: 048
     Dates: start: 20030201, end: 20061201
  9. RIVOTRIL [Concomitant]
     Dosage: UNKNOWN
     Dates: start: 20020101

REACTIONS (4)
  - CHOLESTASIS [None]
  - CYTOLYTIC HEPATITIS [None]
  - DIARRHOEA [None]
  - GENERAL PHYSICAL HEALTH DETERIORATION [None]
